FAERS Safety Report 23292373 (Version 1)
Quarter: 2023Q4

REPORT INFORMATION
  Report Type: Spontaneous
  Country: CN (occurrence: CN)
  Receive Date: 20231213
  Receipt Date: 20231213
  Transmission Date: 20240109
  Serious: Yes (Other)
  Sender: FDA-Public Use
  Company Number: CN-009507513-2312CHN003190

PATIENT
  Age: 49 Year
  Sex: Male

DRUGS (15)
  1. PEMBROLIZUMAB [Suspect]
     Active Substance: PEMBROLIZUMAB
     Indication: Lung adenocarcinoma stage IV
     Dosage: 200 MILLIGRAM, EVERY 21 DAYS
     Dates: start: 202202
  2. PEMBROLIZUMAB [Suspect]
     Active Substance: PEMBROLIZUMAB
     Indication: Metastases to the mediastinum
     Dosage: 200 MILLIGRAM, EVERY 21 DAYS
     Dates: start: 202203
  3. PEMBROLIZUMAB [Suspect]
     Active Substance: PEMBROLIZUMAB
     Indication: Metastases to lymph nodes
     Dosage: 200 MILLIGRAM, Q3W
     Dates: start: 202204
  4. PEMBROLIZUMAB [Suspect]
     Active Substance: PEMBROLIZUMAB
     Indication: Metastases to pleura
  5. PEMBROLIZUMAB [Suspect]
     Active Substance: PEMBROLIZUMAB
     Indication: Metastases to bone
  6. CISPLATIN [Concomitant]
     Active Substance: CISPLATIN
     Indication: Lung adenocarcinoma stage IV
     Dosage: 120 MILLIGRAM, EVERY 21 DAYS
     Dates: start: 202202
  7. CISPLATIN [Concomitant]
     Active Substance: CISPLATIN
     Indication: Metastases to the mediastinum
     Dosage: 120 MILLIGRAM, EVERY 21 DAYS
     Dates: start: 202203
  8. CISPLATIN [Concomitant]
     Active Substance: CISPLATIN
     Indication: Metastases to lymph nodes
     Dosage: 120 MILLIGRAM, EVERY 21 DAYS
     Dates: start: 202204
  9. CISPLATIN [Concomitant]
     Active Substance: CISPLATIN
     Indication: Metastases to pleura
  10. CISPLATIN [Concomitant]
     Active Substance: CISPLATIN
     Indication: Metastases to bone
  11. PEMETREXED DISODIUM [Concomitant]
     Active Substance: PEMETREXED DISODIUM
     Indication: Lung adenocarcinoma stage IV
     Dosage: 800 MILLIGRAM, Q3W
     Dates: start: 202202
  12. PEMETREXED DISODIUM [Concomitant]
     Active Substance: PEMETREXED DISODIUM
     Indication: Metastases to the mediastinum
     Dosage: 800 MILLIGRAM, Q3W
     Dates: start: 202203
  13. PEMETREXED DISODIUM [Concomitant]
     Active Substance: PEMETREXED DISODIUM
     Indication: Metastases to lymph nodes
     Dosage: 800 MILLIGRAM, Q3W
     Dates: start: 202204
  14. PEMETREXED DISODIUM [Concomitant]
     Active Substance: PEMETREXED DISODIUM
     Indication: Metastases to pleura
  15. PEMETREXED DISODIUM [Concomitant]
     Active Substance: PEMETREXED DISODIUM
     Indication: Metastases to bone

REACTIONS (1)
  - Tumour hyperprogression [Recovering/Resolving]

NARRATIVE: CASE EVENT DATE: 20220501
